FAERS Safety Report 10384345 (Version 4)
Quarter: 2015Q3

REPORT INFORMATION
  Report Type: Report from Study
  Country: DE (occurrence: DE)
  Receive Date: 20140814
  Receipt Date: 20150814
  Transmission Date: 20151125
  Serious: Yes (Death, Hospitalization)
  Sender: FDA-Public Use
  Company Number: DE-JNJFOC-20120113669

PATIENT
  Sex: Male
  Weight: 107 kg

DRUGS (21)
  1. MTX [Concomitant]
     Active Substance: METHOTREXATE SODIUM
     Indication: RHEUMATOID ARTHRITIS
  2. ALLOPURINOL. [Concomitant]
     Active Substance: ALLOPURINOL
     Dosage: 300 UNSPECIFIED UNITS,1-0-0
     Route: 065
  3. DORZOLAMIDE [Concomitant]
     Active Substance: DORZOLAMIDE
     Route: 047
  4. PROTAPHANE [Concomitant]
     Active Substance: INSULIN HUMAN
     Dosage: I.U. SUBCUTANEOUS 22/22-32-10
     Route: 065
  5. GOLIMUMAB [Suspect]
     Active Substance: GOLIMUMAB
     Indication: RHEUMATOID ARTHRITIS
     Route: 058
     Dates: start: 201005, end: 201104
  6. ARCOXIA [Concomitant]
     Active Substance: ETORICOXIB
     Route: 065
  7. VALSARTAN. [Concomitant]
     Active Substance: VALSARTAN
     Dosage: 80 UNSPECIFIED UNITS, 1-0-0
     Route: 065
  8. PANTOZOL [Concomitant]
     Active Substance: PANTOPRAZOLE SODIUM
     Dosage: 40 UNSPECIFIED UNITS, 1-0-0
     Route: 065
  9. BRIMONIDINE [Concomitant]
     Active Substance: BRIMONIDINE TARTRATE
     Route: 047
  10. HYDROCHLOROTHIAZIDE. [Concomitant]
     Active Substance: HYDROCHLOROTHIAZIDE
     Dosage: 12.5 UNSPECIFIED UNITS, 1-0-1
     Route: 065
  11. MTX [Concomitant]
     Active Substance: METHOTREXATE SODIUM
     Indication: RHEUMATOID ARTHRITIS
     Dates: start: 201310, end: 201312
  12. PREDNISOLONE. [Concomitant]
     Active Substance: PREDNISOLONE
     Dosage: 5-10 MG
     Route: 065
  13. ACTRAPID [Concomitant]
     Active Substance: INSULIN HUMAN
     Dosage: 0-0-10
     Route: 058
  14. FOLSAN [Concomitant]
     Active Substance: FOLIC ACID
     Dosage: ONCE WEEKLY, 1-0-0
     Route: 065
  15. SIMVA [Concomitant]
     Dosage: 40 UNSPECIFIED UNITS, 0-0-1
     Route: 065
  16. MTX [Concomitant]
     Active Substance: METHOTREXATE SODIUM
     Indication: RHEUMATOID ARTHRITIS
     Dates: start: 201005, end: 201104
  17. CORIFEO [Concomitant]
     Dosage: 20 UNSPECIFIED UNITS, 1-0-0
     Route: 065
  18. GOLIMUMAB [Suspect]
     Active Substance: GOLIMUMAB
     Indication: RHEUMATOID ARTHRITIS
     Route: 058
     Dates: start: 201310, end: 201312
  19. MTX [Concomitant]
     Active Substance: METHOTREXATE SODIUM
     Indication: RHEUMATOID ARTHRITIS
     Dates: start: 200802
  20. MOXONIDINE [Concomitant]
     Active Substance: MOXONIDINE
     Dosage: 0.3 UNSPECIFIED UNITS, (1-0-1)
     Route: 065
  21. METFORMIN [Concomitant]
     Active Substance: METFORMIN HYDROCHLORIDE
     Dosage: 500 UNSPECIFIED UNITS, 1-0-0-1
     Route: 065

REACTIONS (6)
  - Erysipelas [Recovering/Resolving]
  - Abscess limb [Not Recovered/Not Resolved]
  - Atrial fibrillation [Unknown]
  - Acute myocardial infarction [Fatal]
  - Brain stem infarction [Recovered/Resolved]
  - Impaired healing [Unknown]

NARRATIVE: CASE EVENT DATE: 20110411
